FAERS Safety Report 7628594-3 (Version None)
Quarter: 2011Q3

REPORT INFORMATION
  Report Type: 
  Country: None (occurrence: None)
  Receive Date: 20110722
  Receipt Date: 20110712
  Transmission Date: 20111222
  Serious: Yes (Hospitalization, Other)
  Sender: FDA-Public Use
  Company Number: US-ABBOTT-11P-163-0838979-00

PATIENT
  Sex: Female
  Weight: 90.8 kg

DRUGS (14)
  1. HUMIRA [Suspect]
     Indication: ANKYLOSING SPONDYLITIS
     Dates: start: 20081201, end: 20090401
  2. VALTURNA [Concomitant]
     Indication: HYPERTENSION
  3. IMITREX [Concomitant]
     Indication: MIGRAINE
  4. SIMVASTATIN [Concomitant]
     Indication: BLOOD CHOLESTEROL INCREASED
  5. ENBREL [Concomitant]
     Indication: ANKYLOSING SPONDYLITIS
     Dates: start: 20090101, end: 20091001
  6. ENBREL [Concomitant]
     Dates: start: 20100101
  7. BYSTOLIC [Concomitant]
     Indication: HYPERTENSION
  8. LASIX [Concomitant]
     Indication: HYPERTENSION
  9. TRILIPIX [Concomitant]
     Indication: BLOOD CHOLESTEROL INCREASED
  10. ADDERAL XR [Concomitant]
     Indication: ATTENTION DEFICIT/HYPERACTIVITY DISORDER
  11. IMITREX [Concomitant]
     Route: 048
  12. SINGULAIR [Concomitant]
     Indication: PRODUCT USED FOR UNKNOWN INDICATION
  13. SOMA [Concomitant]
     Indication: MUSCLE RELAXANT THERAPY
  14. SYNTHROID [Concomitant]
     Indication: AUTOIMMUNE THYROIDITIS

REACTIONS (3)
  - ARTHROPATHY [None]
  - DRUG INEFFECTIVE [None]
  - BACK PAIN [None]
